FAERS Safety Report 9706745 (Version 1)
Quarter: 2013Q4

REPORT INFORMATION
  Report Type: Spontaneous
  Country: US (occurrence: US)
  Receive Date: 20131125
  Receipt Date: 20131125
  Transmission Date: 20140711
  Serious: Yes (Other)
  Sender: FDA-Public Use
  Company Number: US-009507513-1311USA009889

PATIENT
  Sex: Female

DRUGS (1)
  1. JANUMET [Suspect]
     Indication: PRODUCT USED FOR UNKNOWN INDICATION
     Dosage: UNK
     Route: 048
     Dates: start: 201202

REACTIONS (2)
  - Pancreatic carcinoma [Unknown]
  - Pancreatic lesion excision [Unknown]
